FAERS Safety Report 8659557 (Version 2)
Quarter: 2013Q2

REPORT INFORMATION
  Report Type: Report from Study
  Country: MX (occurrence: MX)
  Receive Date: 20120711
  Receipt Date: 20130501
  Transmission Date: 20140414
  Serious: Yes (Death, Hospitalization, Disabling)
  Sender: FDA-Public Use
  Company Number: PHHY2012MX058815

PATIENT
  Age: 86 Year
  Sex: Female

DRUGS (4)
  1. CO-DIOVAN [Suspect]
     Indication: HYPERTENSION
     Dosage: 1 DF (80/12.5 MG), ONCE A DAY
     Dates: start: 2009
  2. INSULIN GARLINE [Concomitant]
     Dosage: 20 IU, DAILY
  3. METOPROLOL [Concomitant]
     Dosage: 0.5 DF, Q12H
  4. PENTOXIFYLLINE [Concomitant]
     Indication: COAGULOPATHY
     Dosage: UNK UKN, ONCE A DAY

REACTIONS (6)
  - Lacunar infarction [Fatal]
  - General physical health deterioration [Fatal]
  - Speech disorder [Fatal]
  - Communication disorder [Fatal]
  - Diabetes mellitus [Fatal]
  - Hypertension [Fatal]
